FAERS Safety Report 22600881 (Version 1)
Quarter: 2023Q2

REPORT INFORMATION
  Report Type: Spontaneous
  Country: US (occurrence: US)
  Receive Date: 20230614
  Receipt Date: 20230614
  Transmission Date: 20230722
  Serious: No
  Sender: FDA-Public Use
  Company Number: US-PFIZER INC-PV202300103631

PATIENT
  Age: 8 Year
  Sex: Male

DRUGS (1)
  1. OXBRYTA [Suspect]
     Active Substance: VOXELOTOR
     Dosage: 300 MG, 3X/DAY
     Route: 048
     Dates: start: 202212

REACTIONS (1)
  - Acne [Unknown]

NARRATIVE: CASE EVENT DATE: 20230601
